FAERS Safety Report 21076245 (Version 3)
Quarter: 2023Q1

REPORT INFORMATION
  Report Type: Spontaneous
  Country: US (occurrence: US)
  Receive Date: 20220713
  Receipt Date: 20230309
  Transmission Date: 20230417
  Serious: No
  Sender: FDA-Public Use
  Company Number: US-MYOVANT SCIENCES GMBH-2022MYSCI0300708

PATIENT
  Sex: Male

DRUGS (4)
  1. ORGOVYX [Suspect]
     Active Substance: RELUGOLIX
     Indication: Prostate cancer
     Dosage: 120 MILLIGRAM, QD
     Route: 048
     Dates: start: 20210526
  2. ORGOVYX [Suspect]
     Active Substance: RELUGOLIX
     Dosage: UNK
  3. ORGOVYX [Suspect]
     Active Substance: RELUGOLIX
     Dosage: UNK
  4. LISINOPRIL [Suspect]
     Active Substance: LISINOPRIL
     Indication: Product used for unknown indication
     Dosage: UNK
     Route: 065

REACTIONS (9)
  - Blood cholesterol increased [Not Recovered/Not Resolved]
  - Dizziness postural [Unknown]
  - Glycosylated haemoglobin decreased [Unknown]
  - Dizziness [Unknown]
  - Balance disorder [Unknown]
  - Diarrhoea [Not Recovered/Not Resolved]
  - Blood triglycerides increased [Unknown]
  - Drug hypersensitivity [Recovering/Resolving]
  - Product dose omission issue [Recovered/Resolved]
